FAERS Safety Report 13165835 (Version 1)
Quarter: 2017Q1

REPORT INFORMATION
  Report Type: Spontaneous
  Country: US (occurrence: US)
  Receive Date: 20170126
  Receipt Date: 20170126
  Transmission Date: 20170428
  Serious: No
  Sender: FDA-Public Use
  Company Number: None

PATIENT
  Age: 66 Year
  Sex: Male
  Weight: 82.2 kg

DRUGS (1)
  1. ADALIMUMAB [Suspect]
     Active Substance: ADALIMUMAB
     Indication: PSORIASIS
     Dosage: 40 MG OTHER SQ
     Route: 058
     Dates: start: 20161128, end: 20170123

REACTIONS (1)
  - Peripheral swelling [None]

NARRATIVE: CASE EVENT DATE: 20170123
